FAERS Safety Report 6165563-7 (Version None)
Quarter: 2009Q2

REPORT INFORMATION
  Report Type: 
  Country: None (occurrence: None)
  Receive Date: 20090423
  Receipt Date: 20090421
  Transmission Date: 20091009
  Serious: No
  Sender: FDA-Public Use
  Company Number: US-B.I. PHARMACEUTICALS,INC./RIDGEFIELD-2009-BP-05044BP

PATIENT
  Sex: Male

DRUGS (3)
  1. ATROVENT HFA [Suspect]
     Indication: ASTHMA
     Dosage: 4PUF
     Route: 055
     Dates: start: 20090417, end: 20090417
  2. LISINOPRIL [Concomitant]
     Indication: HYPERTENSION
     Dosage: 10MG
     Route: 048
     Dates: start: 20060101
  3. VERAPAMIL [Concomitant]
     Indication: HYPERTENSION
     Dosage: 360MG
     Route: 048
     Dates: start: 20060101

REACTIONS (2)
  - DIZZINESS [None]
  - PRODUCTIVE COUGH [None]
